FAERS Safety Report 10265506 (Version 1)
Quarter: 2014Q2

REPORT INFORMATION
  Report Type: Spontaneous
  Country: US (occurrence: None)
  Receive Date: 20140624
  Receipt Date: 20140624
  Transmission Date: 20141212
  Serious: Yes (Hospitalization)
  Sender: FDA-Public Use
  Company Number: US-001061

PATIENT
  Age: 40 Year
  Sex: Female

DRUGS (2)
  1. GATTEX [Suspect]
     Indication: SHORT-BOWEL SYNDROME
     Dosage: DF
     Route: 058
     Dates: start: 20140116, end: 201406
  2. SOLUTIONS FOR PARENTRAL NUTRITION [Concomitant]

REACTIONS (7)
  - Drug dose omission [None]
  - Pneumonia [None]
  - Feeling cold [None]
  - Tremor [None]
  - Pulmonary embolism [None]
  - Pulmonary thrombosis [None]
  - Device related infection [None]
